FAERS Safety Report 8517315-8 (Version None)
Quarter: 2012Q3

REPORT INFORMATION
  Report Type: 
  Country: None (occurrence: None)
  Receive Date: 20120718
  Receipt Date: 20120706
  Transmission Date: 20120928
  Serious: Yes (Hospitalization)
  Sender: FDA-Public Use
  Company Number: JP-009507513-1207JPN000106

PATIENT

DRUGS (19)
  1. RINDERON V [Concomitant]
     Route: 061
     Dates: start: 20120502
  2. [THERAPY UNSPECIFIED] [Concomitant]
     Route: 051
     Dates: start: 20120508
  3. REBETOL [Suspect]
     Indication: HEPATITIS C
     Dosage: 800 MG, QD
     Route: 048
     Dates: start: 20120221, end: 20120520
  4. TELAPREVIR [Suspect]
     Indication: HEPATITIS C
     Dosage: 2250 MG, QD
     Route: 048
     Dates: start: 20120221, end: 20120514
  5. [THERAPY UNSPECIFIED] [Concomitant]
     Dosage: UNK
     Route: 061
     Dates: start: 20120410
  6. GASMOTIN [Concomitant]
     Dosage: 15 MG, QD
     Route: 048
     Dates: start: 20120417
  7. MARZULENE-S [Concomitant]
     Route: 048
     Dates: start: 20120417
  8. CLOBETASOL PROPIONATE [Concomitant]
     Route: 061
     Dates: start: 20120502
  9. PROMAC (NITROFURANTOIN) [Concomitant]
     Dosage: 150 MG, QD
     Route: 048
     Dates: start: 20120417
  10. [THERAPY UNSPECIFIED] [Concomitant]
     Route: 051
     Dates: start: 20120502
  11. [THERAPY UNSPECIFIED] [Concomitant]
     Dosage: UNK
     Route: 061
     Dates: start: 20120502
  12. ROXATIDINE ACETATE HCL [Concomitant]
     Dosage: 150 MG, QD
     Route: 048
     Dates: start: 20120417
  13. ALLOPURINOL [Suspect]
     Dosage: 100 MG, QD
     Route: 048
  14. URSO 250 [Concomitant]
     Indication: HEPATITIS C
     Dosage: 600 MG, QD
     Route: 048
     Dates: end: 20120312
  15. OLOPATADINE HCL [Concomitant]
     Dosage: 10 MG, QD
     Route: 048
     Dates: start: 20120502
  16. PEG-INTRON [Suspect]
     Indication: HEPATITIS C
     Dosage: 1.5MCG/KG/WEEK
     Route: 058
     Dates: start: 20120221, end: 20120520
  17. ALLOPURINOL [Suspect]
     Indication: ADVERSE EVENT
     Dosage: 200 MG, QD
     Route: 048
     Dates: start: 20120223
  18. ANTEBATE [Concomitant]
     Route: 061
     Dates: start: 20120410
  19. [THERAPY UNSPECIFIED] [Concomitant]
     Dosage: UNK
     Route: 061
     Dates: start: 20120410

REACTIONS (7)
  - DYSGEUSIA [None]
  - DRUG ERUPTION [None]
  - PRURITUS [None]
  - LYMPHADENOPATHY [None]
  - INSOMNIA [None]
  - HYPERURICAEMIA [None]
  - HEPATIC FUNCTION ABNORMAL [None]
